FAERS Safety Report 16169970 (Version 1)
Quarter: 2019Q2

REPORT INFORMATION
  Report Type: Spontaneous
  Country: US (occurrence: US)
  Receive Date: 20190305
  Receipt Date: 20190305
  Transmission Date: 20190711
  Serious: Yes (Hospitalization)
  Sender: FDA-Public Use
  Company Number: None

PATIENT
  Age: 69 Year
  Sex: Female

DRUGS (2)
  1. ENOXAPARIN 80 MG/ML PFS [Suspect]
     Active Substance: ENOXAPARIN SODIUM
     Indication: EMBOLISM
     Dosage: ?          OTHER FREQUENCY:Q12;?
     Route: 058
     Dates: start: 20181002
  2. ENOXAPARIN 100MG/ML PFS [Suspect]
     Active Substance: ENOXAPARIN
     Indication: EMBOLISM
     Route: 058
     Dates: start: 20181002

REACTIONS (2)
  - Therapy change [None]
  - Hospitalisation [None]

NARRATIVE: CASE EVENT DATE: 20180228
